FAERS Safety Report 6285370-4 (Version None)
Quarter: 2009Q3

REPORT INFORMATION
  Report Type: 
  Country: None (occurrence: None)
  Receive Date: 20090727
  Receipt Date: 20090717
  Transmission Date: 20100115
  Serious: Yes (Hospitalization)
  Sender: FDA-Public Use
  Company Number: US-ABBOTT-09P-163-0585930-00

PATIENT
  Sex: Male

DRUGS (7)
  1. NIASPAN [Suspect]
     Indication: BLOOD CHOLESTEROL INCREASED
  2. NIACIN [Suspect]
     Indication: BLOOD CHOLESTEROL INCREASED
     Route: 048
     Dates: start: 19990101
  3. ASPIRIN [Concomitant]
     Indication: CORONARY ARTERIAL STENT INSERTION
  4. PLAVIX [Concomitant]
     Indication: CORONARY ARTERIAL STENT INSERTION
     Dates: start: 20070101
  5. LIPITOR [Concomitant]
     Indication: CORONARY ARTERIAL STENT INSERTION
  6. LISINOPRIL [Concomitant]
     Indication: HYPERTENSION
  7. TOPROL-XL [Concomitant]
     Indication: HYPERTENSION
     Dosage: UNKNOWN DOSE, TOOK HALF TAB DAILY

REACTIONS (3)
  - CORONARY ARTERY OCCLUSION [None]
  - FLUSHING [None]
  - HAEMORRHAGE [None]
